FAERS Safety Report 10425517 (Version 1)
Quarter: 2014Q3

REPORT INFORMATION
  Report Type: Spontaneous
  Country: US (occurrence: US)
  Receive Date: 20140902
  Receipt Date: 20140902
  Transmission Date: 20150326
  Serious: No
  Sender: FDA-Public Use
  Company Number: US-PFIZER INC-2014242602

PATIENT
  Age: 28 Year
  Sex: Female
  Weight: 68.03 kg

DRUGS (3)
  1. EFFEXOR XR [Suspect]
     Active Substance: VENLAFAXINE HYDROCHLORIDE
     Indication: ANXIETY
     Dosage: 75 MG, 1X/DAY
     Route: 048
     Dates: start: 2009, end: 2009
  2. EFFEXOR XR [Suspect]
     Active Substance: VENLAFAXINE HYDROCHLORIDE
     Dosage: 150 MG, DAILY
     Route: 048
     Dates: end: 20140701
  3. EFFEXOR XR [Suspect]
     Active Substance: VENLAFAXINE HYDROCHLORIDE
     Indication: MOOD SWINGS
     Dosage: 150 MG, 2X/DAY
     Route: 048
     Dates: start: 2009

REACTIONS (7)
  - Crying [Not Recovered/Not Resolved]
  - Vomiting [Not Recovered/Not Resolved]
  - Mood swings [Not Recovered/Not Resolved]
  - Irritability [Not Recovered/Not Resolved]
  - Emotional distress [Not Recovered/Not Resolved]
  - Headache [Not Recovered/Not Resolved]
  - Fatigue [Not Recovered/Not Resolved]

NARRATIVE: CASE EVENT DATE: 201407
